FAERS Safety Report 4617489-5 (Version None)
Quarter: 2005Q1

REPORT INFORMATION
  Report Type: 
  Country: None (occurrence: None)
  Receive Date: 20050318
  Receipt Date: 20051104
  Transmission Date: 20050727
  Serious: Yes (Other)
  Sender: FDA-Public Use
  Company Number: 2005-DE-00897DE

PATIENT
  Age: 68 Year
  Sex: Female

DRUGS (2)
  1. MOBIC [Suspect]
     Indication: OSTEOARTHRITIS
     Dosage: 15 MG
     Route: 048
     Dates: start: 20031101, end: 20040201
  2. MOBIC [Suspect]
     Indication: PAIN
     Dosage: 15 MG
     Route: 048
     Dates: start: 20031101, end: 20040201

REACTIONS (3)
  - ABDOMINAL PAIN [None]
  - FAECES DISCOLOURED [None]
  - GASTRIC ULCER [None]
